FAERS Safety Report 6084610-4 (Version None)
Quarter: 2009Q1

REPORT INFORMATION
  Report Type: 
  Country: None (occurrence: None)
  Receive Date: 20090219
  Receipt Date: 20090205
  Transmission Date: 20090719
  Serious: Yes (Other)
  Sender: FDA-Public Use
  Company Number: US-ROXANE LABORATORIES, INC.-2009-RO-00116RO

PATIENT
  Age: 44 Year
  Sex: Female

DRUGS (11)
  1. PREDNISONE TAB [Suspect]
     Indication: IMMUNE RECONSTITUTION SYNDROME
  2. MORPHINE [Suspect]
     Indication: PAIN
  3. ISONIAZID [Concomitant]
     Indication: MYCOBACTERIUM AVIUM COMPLEX INFECTION
  4. ISONIAZID [Concomitant]
     Indication: DISSEMINATED TUBERCULOSIS
  5. PYRAZINAMIDE [Concomitant]
     Indication: MYCOBACTERIUM AVIUM COMPLEX INFECTION
  6. PYRAZINAMIDE [Concomitant]
     Indication: DISSEMINATED TUBERCULOSIS
  7. ETHAMBUTOL HYDROCHLORIDE [Concomitant]
     Indication: MYCOBACTERIUM AVIUM COMPLEX INFECTION
  8. ETHAMBUTOL HYDROCHLORIDE [Concomitant]
     Indication: DISSEMINATED TUBERCULOSIS
  9. AZITHROMYCIN [Concomitant]
     Indication: MYCOBACTERIUM AVIUM COMPLEX INFECTION
  10. AZITHROMYCIN [Concomitant]
     Indication: DISSEMINATED TUBERCULOSIS
  11. HAART REGIMEN [Concomitant]
     Indication: ACQUIRED IMMUNODEFICIENCY SYNDROME

REACTIONS (5)
  - ILEUS [None]
  - INTESTINAL PERFORATION [None]
  - PAIN [None]
  - PERITONITIS [None]
  - SMALL INTESTINAL OBSTRUCTION [None]
